FAERS Safety Report 7046784-8 (Version None)
Quarter: 2010Q4

REPORT INFORMATION
  Report Type: 
  Country: None (occurrence: None)
  Receive Date: 20101007
  Receipt Date: 20100922
  Transmission Date: 20110411
  Serious: Yes (Death, Life-Threatening)
  Sender: FDA-Public Use
  Company Number: 2010004133

PATIENT
  Age: 73 Year
  Sex: Male
  Weight: 57.2 kg

DRUGS (10)
  1. ERLOTINIB HYDROCHLORIDE [Suspect]
     Indication: NON-SMALL CELL LUNG CANCER
     Dosage: (150 MG, QD), ORAL
     Route: 048
     Dates: start: 20081021, end: 20081120
  2. OXYCONTIN [Concomitant]
  3. ACETAMINOPHEN [Concomitant]
  4. NOVAMIN (PROCHLORPERAZINE) [Concomitant]
  5. DIGOXIN [Concomitant]
  6. PREDNISOLONE [Concomitant]
  7. MAGNESIUM OXIDE (MAGNESIUM OXIDE) [Concomitant]
  8. MICARDIS [Concomitant]
  9. LAC-B [Concomitant]
  10. RINDERON-VG (VALISONE-G) [Concomitant]

REACTIONS (12)
  - ADENOCARCINOMA [None]
  - CARDIAC ARREST [None]
  - CARDIAC FAILURE [None]
  - HEADACHE [None]
  - MALAISE [None]
  - MALIGNANT NEOPLASM PROGRESSION [None]
  - MYOCARDIAL INFARCTION [None]
  - NERVOUS SYSTEM DISORDER [None]
  - NON-SMALL CELL LUNG CANCER [None]
  - PAIN [None]
  - RASH [None]
  - SYNCOPE [None]
